FAERS Safety Report 4676513-4 (Version None)
Quarter: 2005Q2

REPORT INFORMATION
  Report Type: 
  Country: None (occurrence: None)
  Receive Date: 20050525
  Receipt Date: 20050512
  Transmission Date: 20051028
  Serious: Yes (Hospitalization, Disabling)
  Sender: FDA-Public Use
  Company Number: 2005075004

PATIENT
  Sex: Female

DRUGS (5)
  1. CELEBREX [Suspect]
     Indication: PAIN
     Dosage: (100 MG), ORAL
     Route: 048
     Dates: end: 20050501
  2. IRBESARTAN [Concomitant]
  3. ASPIRIN [Concomitant]
  4. THYROXINE (LEVOTHYROXINE) [Concomitant]
  5. SIMVASTATIN [Concomitant]

REACTIONS (1)
  - HEMIPLEGIA [None]
